FAERS Safety Report 5121307-9 (Version None)
Quarter: 2006Q4

REPORT INFORMATION
  Report Type: 
  Country: None (occurrence: None)
  Receive Date: 20061002
  Receipt Date: 20060919
  Transmission Date: 20070319
  Serious: Yes (Other)
  Sender: FDA-Public Use
  Company Number: 2006094830

PATIENT
  Age: 62 Year
  Sex: Male
  Weight: 101.6057 kg

DRUGS (67)
  1. LYRICA [Suspect]
     Indication: DIABETIC NEUROPATHY
     Dosage: 150 MG (50 MG, 3 IN 1 D), ORAL
     Route: 048
     Dates: start: 20060607, end: 20060701
  2. LIPITOR [Concomitant]
  3. TOPROL-XL [Concomitant]
  4. PLAVIX [Concomitant]
  5. ASPIRIN [Concomitant]
  6. PROPOXYPHENE HCL AND ACETAMINOPHEN (DEXTROPROPOXYPHENE HYDROCHLORIDE, [Concomitant]
  7. CLARINEX [Concomitant]
  8. ISOSORBIDE MONONITRATE [Concomitant]
  9. FUROSEMIDE [Concomitant]
  10. LANTUS [Concomitant]
  11. TERAZOSIN HCL [Concomitant]
  12. ZETIA [Concomitant]
  13. INSULIN (INSULIN) [Concomitant]
  14. BIO-INSULIN R (INSULIN HUMAN) [Concomitant]
  15. HYTRIN [Concomitant]
  16. GLUCOTROL XL [Concomitant]
  17. GLUCOTROL [Concomitant]
  18. CARDIZEM CD [Concomitant]
  19. NIZORAL [Concomitant]
  20. AMOXIL [Concomitant]
  21. DISALCID (SALSALATE) [Concomitant]
  22. DARVOCET-N 100 [Concomitant]
  23. PRAVACHOL [Concomitant]
  24. PREVACID [Concomitant]
  25. ULTRAM [Concomitant]
  26. GLUCOPHAGE [Concomitant]
  27. ZITHROMAX [Concomitant]
  28. CEFTIN [Concomitant]
  29. MAXAIR [Concomitant]
  30. NPH INSULIN [Concomitant]
  31. HUMULIN REGULAR (INSULIN HUMAN) [Concomitant]
  32. REDUX [Concomitant]
  33. MAGNESIUM (MAGNESIUM) [Concomitant]
  34. PRILOSEC [Concomitant]
  35. PROPULSID [Concomitant]
  36. AUGMENTIN '125' [Concomitant]
  37. ACCUPRIL [Concomitant]
  38. METAMUCIL-2 [Concomitant]
  39. VIAGRA [Concomitant]
  40. CLARITIN [Concomitant]
  41. ATARAX [Concomitant]
  42. KWELL (LINDANE) [Concomitant]
  43. HYOSCYAMINE (HYOSCYAMINE) [Concomitant]
  44. LIPITOR [Concomitant]
  45. AXID [Concomitant]
  46. CANTIL (MEPENZOLATE BROMIDE) [Concomitant]
  47. LOTRISONE [Concomitant]
  48. CARTIA XT [Concomitant]
  49. TEQUIN [Concomitant]
  50. NITROQUICK (GLYCERYL TRINITRATE) [Concomitant]
  51. CLARINEX [Concomitant]
  52. ANUSOL [Concomitant]
  53. NITROLINGUAL-PUMPSPRAY (GLYCERYL TRINITRATE) [Concomitant]
  54. TOPROL-XL [Concomitant]
  55. DURATUSS (GUAIFENESIN, PSEUDOEPHEDRINE HYDROCHLORIDE) [Concomitant]
  56. NEURONTIN [Concomitant]
  57. LOVASTATIN [Concomitant]
  58. LASIX [Concomitant]
  59. PLAVIX [Concomitant]
  60. ANDROGEL [Concomitant]
  61. VYTORIN [Concomitant]
  62. LOPRESSOR [Concomitant]
  63. PRAMOX HC (HYDROCORTISONE ACETATE, PRAMOCAINE HYDROCHLORIDE) [Concomitant]
  64. NEXIUM [Concomitant]
  65. ELIDEL [Concomitant]
  66. PROCARDIA XL [Concomitant]
  67. MOTRIN [Concomitant]

REACTIONS (12)
  - ARTHRALGIA [None]
  - BLOOD GLUCOSE INCREASED [None]
  - DIARRHOEA [None]
  - DRY MOUTH [None]
  - ERYTHEMA [None]
  - GASTROINTESTINAL PAIN [None]
  - JOINT SWELLING [None]
  - OEDEMA PERIPHERAL [None]
  - PAIN IN EXTREMITY [None]
  - PARAESTHESIA [None]
  - SUNBURN [None]
  - WEIGHT INCREASED [None]
